FAERS Safety Report 18207434 (Version 2)
Quarter: 2020Q3

REPORT INFORMATION
  Report Type: Report from Study
  Country: None (occurrence: CA)
  Receive Date: 20200828
  Receipt Date: 20200901
  Transmission Date: 20201103
  Serious: Yes (Other)
  Sender: FDA-Public Use
  Company Number: CA-ABBVIE-20K-028-3538418-00

PATIENT
  Age: 72 Year
  Sex: Male

DRUGS (1)
  1. HUMIRA [Suspect]
     Active Substance: ADALIMUMAB
     Indication: CROHN^S DISEASE
     Route: 058
     Dates: start: 20151015

REACTIONS (13)
  - Adverse food reaction [Unknown]
  - Impaired quality of life [Not Recovered/Not Resolved]
  - Arthritis [Unknown]
  - Back pain [Not Recovered/Not Resolved]
  - Impaired work ability [Not Recovered/Not Resolved]
  - Facial pain [Not Recovered/Not Resolved]
  - Crohn^s disease [Recovered/Resolved]
  - Oral pain [Not Recovered/Not Resolved]
  - Crohn^s disease [Recovered/Resolved]
  - Sinusitis [Not Recovered/Not Resolved]
  - Constipation [Recovered/Resolved]
  - Retinal tear [Unknown]
  - Haemorrhoids [Not Recovered/Not Resolved]

NARRATIVE: CASE EVENT DATE: 2020
